FAERS Safety Report 4687799-4 (Version None)
Quarter: 2005Q2

REPORT INFORMATION
  Report Type: 
  Country: None (occurrence: None)
  Receive Date: 20050608
  Receipt Date: 20050608
  Transmission Date: 20051028
  Serious: Yes (Other)
  Sender: FDA-Public Use
  Company Number: None

PATIENT
  Age: 50 Year
  Sex: Female
  Weight: 125.1928 kg

DRUGS (1)
  1. INSPRA [Suspect]
     Indication: CARDIOMYOPATHY
     Dosage: 25 MG  DAILY  PO
     Route: 048
     Dates: start: 20040506, end: 20040608

REACTIONS (4)
  - ABDOMINAL DISTENSION [None]
  - ALANINE AMINOTRANSFERASE INCREASED [None]
  - ASPARTATE AMINOTRANSFERASE INCREASED [None]
  - BLOOD AMYLASE INCREASED [None]
